FAERS Safety Report 7516900-X (Version None)
Quarter: 2011Q2

REPORT INFORMATION
  Report Type: 
  Country: None (occurrence: None)
  Receive Date: 20110601
  Receipt Date: 20110527
  Transmission Date: 20111010
  Serious: Yes (Death, Hospitalization, Other)
  Sender: FDA-Public Use
  Company Number: IT-BRISTOL-MYERS SQUIBB COMPANY-15481849

PATIENT
  Age: 65 Year
  Sex: Male

DRUGS (4)
  1. COUMADIN [Suspect]
     Indication: PROPHYLAXIS
     Dosage: 1 TAB SINCE APR2011
     Route: 048
     Dates: start: 20040402
  2. FUROSEMIDE [Suspect]
  3. BISOPROLOL FUMARATE [Suspect]
  4. CASODEX [Suspect]
     Dosage: 1 DF = 1 TAB
     Dates: start: 20080101

REACTIONS (5)
  - ACUTE RESPIRATORY FAILURE [None]
  - PROSTATE CANCER [None]
  - RECTAL HAEMORRHAGE [None]
  - CEREBROVASCULAR ACCIDENT [None]
  - ISCHAEMIC STROKE [None]
